FAERS Safety Report 10378277 (Version 1)
Quarter: 2014Q3

REPORT INFORMATION
  Report Type: Spontaneous
  Country: US (occurrence: None)
  Receive Date: 20140811
  Receipt Date: 20140811
  Transmission Date: 20150326
  Serious: Yes (Other)
  Sender: FDA-Public Use
  Company Number: None

PATIENT
  Age: 74 Year
  Sex: Female
  Weight: 77.3 kg

DRUGS (1)
  1. FLUNISOLIDE. [Suspect]
     Active Substance: FLUNISOLIDE
     Indication: RHINITIS ALLERGIC
     Route: 045
     Dates: start: 20131105, end: 20140624

REACTIONS (1)
  - Therapeutic response decreased [None]

NARRATIVE: CASE EVENT DATE: 20140624
